FAERS Safety Report 8868754 (Version 1)
Quarter: 2012Q4

REPORT INFORMATION
  Report Type: 
  Country: CL (occurrence: CL)
  Receive Date: 20121024
  Receipt Date: 20121024
  Transmission Date: 20130627
  Serious: Yes (Hospitalization)
  Sender: FDA-Public Use
  Company Number: CL-B.I. PHARMACEUTICALS,INC./RIDGEFIELD-2012-RA-00307RA

PATIENT
  Age: 62 Year
  Sex: Male

DRUGS (6)
  1. TRAYENTA [Suspect]
     Indication: TYPE 2 DIABETES MELLITUS
  2. METFORMIN [Concomitant]
  3. VALSARTAN HCT [Concomitant]
  4. ALOPURINOL [Concomitant]
  5. OMEPRAZOLE [Concomitant]
  6. TAMSULOSINA [Concomitant]

REACTIONS (1)
  - Oedematous pancreatitis [Unknown]
